FAERS Safety Report 9025959 (Version 1)
Quarter: 2012Q4

REPORT INFORMATION
  Report Type: Spontaneous
  Country: US (occurrence: None)
  Receive Date: 20121217
  Receipt Date: 20121217
  Transmission Date: 20130627
  Serious: Yes (Life-Threatening, Hospitalization, Disabling)
  Sender: FDA-Public Use
  Company Number: None

PATIENT
  Age: 50 Year
  Sex: Female
  Weight: 75.75 kg

DRUGS (1)
  1. GAMMAGARD [Suspect]
     Route: 041
     Dates: start: 20120723, end: 20120727

REACTIONS (5)
  - Meningitis aseptic [None]
  - Renal failure acute [None]
  - Hypertension [None]
  - Thrombocytopenia [None]
  - Aspartate aminotransferase increased [None]
